FAERS Safety Report 8742339 (Version 5)
Quarter: 2012Q4

REPORT INFORMATION
  Report Type: Report from Study
  Country: US (occurrence: US)
  Receive Date: 20120824
  Receipt Date: 20121119
  Transmission Date: 20130627
  Serious: Yes (Hospitalization)
  Sender: FDA-Public Use
  Company Number: US-EISAI INC-E7389-02874-CLI-US

PATIENT
  Age: 63 Year
  Sex: Female
  Weight: 94 kg

DRUGS (22)
  1. E7389 (BOLD) [Suspect]
     Indication: BREAST CANCER
     Route: 041
     Dates: start: 20120607, end: 20120808
  2. CAPECITABINE [Suspect]
     Indication: BREAST CANCER
     Route: 048
     Dates: start: 20120607, end: 20120809
  3. CAPECITABINE [Suspect]
     Route: 048
     Dates: start: 20120705, end: 20120809
  4. NEURONTIN [Concomitant]
     Route: 048
  5. KLONOPIN [Concomitant]
     Dosage: 1 - 2 MG
     Route: 048
  6. NORCO [Concomitant]
     Dosage: 1 - 2 MG
     Route: 048
  7. NOVOLOG FLEXPEN [Concomitant]
     Dosage: 1 - 2 MG
     Route: 058
  8. NOVOLOG 70-30 [Concomitant]
     Dosage: 1 - 2 MG
     Route: 058
  9. CYCLOBENZAPRINE HCL [Concomitant]
     Dosage: 1 - 2 MG
     Route: 048
     Dates: end: 201206
  10. VYTORIN [Concomitant]
     Dosage: 1 - 2 MG
     Route: 048
     Dates: end: 201206
  11. SKELAXIN [Concomitant]
     Dosage: 1 - 2 MG
     Route: 048
     Dates: end: 201206
  12. DIOVAN HCT [Concomitant]
     Dosage: 1 - 2 MG
     Route: 048
     Dates: end: 201206
  13. AMLODIPINE [Concomitant]
     Route: 048
  14. BACLOFEN [Concomitant]
     Route: 048
  15. BUMETANIDE [Concomitant]
     Route: 048
  16. CARVEDILOL [Concomitant]
     Route: 048
  17. ESCITALOPRAM [Concomitant]
     Route: 048
  18. HYDROXYZINE [Concomitant]
     Route: 048
  19. LOPERAMIDE [Concomitant]
     Route: 048
  20. METRONIDAZOLE [Concomitant]
     Route: 048
  21. PROMETHAZINE [Concomitant]
     Route: 048
  22. TOBRAMYCIN-DEXAMETHASONE [Concomitant]

REACTIONS (3)
  - Renal failure acute [Recovered/Resolved]
  - Abdominal pain [Recovered/Resolved]
  - Mental status changes [Recovered/Resolved]
